FAERS Safety Report 7608354-X (Version None)
Quarter: 2011Q3

REPORT INFORMATION
  Report Type: 
  Country: None (occurrence: None)
  Receive Date: 20110714
  Receipt Date: 20110705
  Transmission Date: 20111222
  Serious: Yes (Other)
  Sender: FDA-Public Use
  Company Number: BR-ASTRAZENECA-2011SE40942

PATIENT
  Age: 56 Year
  Sex: Female
  Weight: 89 kg

DRUGS (9)
  1. OMEPRAZOLE [Suspect]
     Indication: GASTRITIS PROPHYLAXIS
     Route: 048
     Dates: start: 20060101
  2. LASIX [Concomitant]
     Route: 048
     Dates: start: 19910101
  3. SYMBICORT [Suspect]
     Indication: BRONCHITIS
     Dosage: 160/4.5 MCG
     Route: 055
     Dates: start: 20090101, end: 20110601
  4. SYMBICORT [Suspect]
     Dosage: 320/9 MCG
     Route: 055
     Dates: start: 20110601
  5. INSULIN [Concomitant]
     Route: 058
     Dates: start: 19910101
  6. CALCITRIOL [Concomitant]
     Indication: OSTEOPOROSIS PROPHYLAXIS
     Route: 048
     Dates: start: 20100301
  7. TIAMINE [Concomitant]
     Route: 048
  8. LOSARTAN POTASSIUM [Suspect]
     Indication: HYPERTENSION
     Route: 048
     Dates: start: 20050101, end: 20110701
  9. ASPIRIN [Concomitant]
     Route: 048
     Dates: start: 19910101

REACTIONS (9)
  - BLOOD PRESSURE INADEQUATELY CONTROLLED [None]
  - DRUG PRESCRIBING ERROR [None]
  - RENAL FAILURE [None]
  - LABYRINTHITIS [None]
  - HYPERTENSION [None]
  - BRONCHITIS [None]
  - DEPRESSION [None]
  - CONDITION AGGRAVATED [None]
  - DYSPNOEA [None]
